FAERS Safety Report 4552275-6 (Version None)
Quarter: 2005Q1

REPORT INFORMATION
  Report Type: 
  Country: None (occurrence: None)
  Receive Date: 20050112
  Receipt Date: 20050112
  Transmission Date: 20050727
  Serious: Yes (Life-Threatening)
  Sender: FDA-Public Use
  Company Number: None

PATIENT
  Age: 78 Year
  Sex: Male
  Weight: 62.5964 kg

DRUGS (5)
  1. TARCEVA [Suspect]
     Indication: NON-SMALL CELL LUNG CANCER STAGE IV
     Dosage: STAGE IV NSCLC
     Route: 042
     Dates: start: 20041229, end: 20050108
  2. AMLODIPINE [Concomitant]
  3. COMPAZINE [Concomitant]
  4. TYLENOL [Concomitant]
  5. REISHEE CHINESE MUSHROOMS [Concomitant]

REACTIONS (1)
  - INTERSTITIAL LUNG DISEASE [None]
